FAERS Safety Report 6959449-5 (Version None)
Quarter: 2010Q3

REPORT INFORMATION
  Report Type: 
  Country: None (occurrence: None)
  Receive Date: 20100827
  Receipt Date: 20100812
  Transmission Date: 20110219
  Serious: Yes (Hospitalization)
  Sender: FDA-Public Use
  Company Number: AMAGA201000325

PATIENT
  Age: 66 Year
  Sex: Male
  Weight: 88 kg

DRUGS (8)
  1. FERAHEME [Suspect]
     Indication: IRON DEFICIENCY ANAEMIA
     Dosage: 510 MG, SINGLE, INTRAVENOUS
     Route: 042
     Dates: start: 20100812, end: 20100812
  2. GLIPIZIDE [Concomitant]
  3. PRANDIN (DEFLAZACORT) [Concomitant]
  4. GABAPENTIN [Concomitant]
  5. LIPITOR [Concomitant]
  6. ACTOS [Concomitant]
  7. GLIMEPIRIDE [Concomitant]
  8. INSULIN (INSULIN) [Concomitant]

REACTIONS (11)
  - ANAPHYLACTIC REACTION [None]
  - APHASIA [None]
  - BACK PAIN [None]
  - BLOOD PRESSURE SYSTOLIC INCREASED [None]
  - CHEST PAIN [None]
  - DRUG HYPERSENSITIVITY [None]
  - ELECTROCARDIOGRAM ST-T CHANGE [None]
  - HAEMODYNAMIC INSTABILITY [None]
  - NECK PAIN [None]
  - SCREAMING [None]
  - TROPONIN INCREASED [None]
